FAERS Safety Report 9255561 (Version 2)
Quarter: 2013Q2

REPORT INFORMATION
  Report Type: Spontaneous
  Country: US (occurrence: US)
  Receive Date: 20130425
  Receipt Date: 20130513
  Transmission Date: 20140414
  Serious: Yes (Life-Threatening, Hospitalization, Other)
  Sender: FDA-Public Use
  Company Number: US-GLAXOSMITHKLINE-A1020364A

PATIENT
  Age: 67 Year
  Sex: Female

DRUGS (3)
  1. TYKERB [Suspect]
     Indication: BREAST CANCER
     Dosage: 1000MG PER DAY
     Route: 048
     Dates: start: 20120727, end: 20130412
  2. HERCEPTIN [Concomitant]
  3. MULTAQ [Concomitant]

REACTIONS (1)
  - Atrial fibrillation [Recovered/Resolved]
